FAERS Safety Report 4523032-1 (Version None)
Quarter: 2004Q4

REPORT INFORMATION
  Report Type: 
  Country: None (occurrence: None)
  Receive Date: 20041207
  Receipt Date: 20041207
  Transmission Date: 20050328
  Serious: Yes (Life-Threatening, Hospitalization)
  Sender: FDA-Public Use
  Company Number: None

PATIENT
  Sex: Male

DRUGS (5)
  1. GEMCITABINE [Suspect]
     Indication: PANCREATIC CARCINOMA METASTATIC
     Dosage: 1000   Q WEEKLY  INTRAVENOUS
     Route: 042
     Dates: start: 20040127, end: 20041202
  2. IRINOTECAN [Suspect]
     Indication: PANCREATIC CARCINOMA METASTATIC
     Dosage: 100  Q WEEKLY  INTRAVENOUS
     Route: 042
     Dates: start: 20040127, end: 20041202
  3. ZOFRAN [Concomitant]
  4. DECADRON [Concomitant]
  5. ATROPINE [Concomitant]

REACTIONS (1)
  - ACUTE MYOCARDIAL INFARCTION [None]
